FAERS Safety Report 10200923 (Version 2)
Quarter: 2014Q2

REPORT INFORMATION
  Report Type: Spontaneous
  Country: US (occurrence: US)
  Receive Date: 20140528
  Receipt Date: 20140528
  Transmission Date: 20141212
  Serious: Yes (Other)
  Sender: FDA-Public Use
  Company Number: US-JNJFOC-20131214708

PATIENT
  Age: 50 Year
  Sex: Male
  Weight: 99.79 kg

DRUGS (2)
  1. NUCYNTA ER [Suspect]
     Indication: BACK PAIN
     Route: 048
     Dates: start: 201309, end: 201310
  2. CYMBALTA [Suspect]
     Indication: BACK PAIN
     Route: 048

REACTIONS (1)
  - Serotonin syndrome [Recovered/Resolved]
